FAERS Safety Report 13506887 (Version 1)
Quarter: 2017Q2

REPORT INFORMATION
  Report Type: Spontaneous
  Country: US (occurrence: US)
  Receive Date: 20170502
  Receipt Date: 20170502
  Transmission Date: 20170830
  Serious: No
  Sender: FDA-Public Use
  Company Number: US-BAUSCH-BL-2017-005611

PATIENT
  Age: 60 Year
  Sex: Female

DRUGS (2)
  1. LOTEMAX [Suspect]
     Active Substance: LOTEPREDNOL ETABONATE
     Indication: CONJUNCTIVITIS ALLERGIC
     Dosage: 1 DROP IN BOTH EYES TWICE DAILY
     Route: 047
     Dates: start: 20161001
  2. LOTEMAX [Suspect]
     Active Substance: LOTEPREDNOL ETABONATE
     Dosage: 1 DROP IN BOTH EYES TWICE DAILY
     Route: 047

REACTIONS (3)
  - Disease recurrence [Unknown]
  - Product container issue [Unknown]
  - Drug dose omission [Unknown]
